FAERS Safety Report 7927730-9 (Version None)
Quarter: 2011Q4

REPORT INFORMATION
  Report Type: 
  Country: None (occurrence: None)
  Receive Date: 20111118
  Receipt Date: 20111107
  Transmission Date: 20120403
  Serious: No
  Sender: FDA-Public Use
  Company Number: US-B.I. PHARMACEUTICALS,INC./RIDGEFIELD-2011-BP-07655BP

PATIENT
  Sex: Female

DRUGS (2)
  1. PRADAXA [Suspect]
     Dosage: 150 MG
     Route: 048
     Dates: start: 20110301, end: 20111103
  2. PRADAXA [Suspect]
     Indication: ATRIAL FIBRILLATION
     Dosage: 300 MG
     Route: 048
     Dates: start: 20110227

REACTIONS (9)
  - RESPIRATORY RATE INCREASED [None]
  - LIP SWELLING [None]
  - CHOKING SENSATION [None]
  - SWELLING FACE [None]
  - CHEST DISCOMFORT [None]
  - FALL [None]
  - DYSPNOEA [None]
  - FATIGUE [None]
  - CONTUSION [None]
